FAERS Safety Report 7753184-1 (Version None)
Quarter: 2011Q3

REPORT INFORMATION
  Report Type: 
  Country: None (occurrence: None)
  Receive Date: 20110915
  Receipt Date: 20110912
  Transmission Date: 20111222
  Serious: Yes (Death, Other)
  Sender: FDA-Public Use
  Company Number: GB-PFIZER INC-2011214008

PATIENT
  Age: 24 Year
  Sex: Male

DRUGS (5)
  1. IBUPROFEN [Suspect]
     Route: 065
  2. ASPIRIN [Suspect]
     Route: 065
  3. KETAMINE HCL [Suspect]
     Route: 065
  4. ACETAMINOPHEN [Suspect]
     Dosage: 50 G, UNK
     Route: 065
  5. FERROUS SULFATE TAB [Suspect]
     Route: 065

REACTIONS (3)
  - MULTIPLE DRUG OVERDOSE [None]
  - ACUTE HEPATIC FAILURE [None]
  - COMPLETED SUICIDE [None]
